FAERS Safety Report 23989948 (Version 3)
Quarter: 2024Q3

REPORT INFORMATION
  Report Type: Spontaneous
  Country: FR (occurrence: FR)
  Receive Date: 20240619
  Receipt Date: 20240701
  Transmission Date: 20241017
  Serious: Yes (Other)
  Sender: PFIZER
  Company Number: None

PATIENT
  Age: 57 Year
  Sex: Female

DRUGS (2)
  1. AZITHROMYCIN [Interacting]
     Active Substance: AZITHROMYCIN
     Indication: Helicobacter infection
     Dosage: UNK
     Route: 048
     Dates: start: 20230731
  2. TACROLIMUS [Interacting]
     Active Substance: TACROLIMUS
     Indication: Heart transplant
     Dosage: UNK
     Route: 048
     Dates: start: 20160706

REACTIONS (4)
  - Drug interaction [Not Recovered/Not Resolved]
  - Myoclonus [Not Recovered/Not Resolved]
  - Hypertension [Not Recovered/Not Resolved]
  - Tremor [Not Recovered/Not Resolved]
